FAERS Safety Report 5062498-8 (Version None)
Quarter: 2006Q3

REPORT INFORMATION
  Report Type: 
  Country: None (occurrence: None)
  Receive Date: 20060721
  Receipt Date: 20060710
  Transmission Date: 20061208
  Serious: Yes (Life-Threatening, Hospitalization)
  Sender: FDA-Public Use
  Company Number: S06-GER-02877-01

PATIENT
  Age: 60 Year
  Sex: Female

DRUGS (3)
  1. ESCITALOPRAM [Suspect]
     Indication: DEPRESSION
     Dosage: 10 MG QD PO
     Route: 048
     Dates: start: 20060601
  2. SOLVEX [Concomitant]
  3. EXELON [Concomitant]

REACTIONS (3)
  - DECREASED ACTIVITY [None]
  - DELIRIUM [None]
  - HYPONATRAEMIA [None]
